FAERS Safety Report 4690725-5 (Version None)
Quarter: 2005Q2

REPORT INFORMATION
  Report Type: 
  Country: None (occurrence: None)
  Receive Date: 20050615
  Receipt Date: 20050606
  Transmission Date: 20051028
  Serious: Yes (Life-Threatening, Disabling)
  Sender: FDA-Public Use
  Company Number: US-MERCK-0506USA01119

PATIENT
  Age: 51 Year
  Sex: Female

DRUGS (3)
  1. PREVACID [Concomitant]
     Route: 065
  2. ZOCOR [Suspect]
     Indication: HYPERCHOLESTEROLAEMIA
     Route: 048
     Dates: start: 20050516, end: 20050602
  3. DIOVAN [Concomitant]
     Route: 065

REACTIONS (1)
  - PAIN [None]
